FAERS Safety Report 5996660-4 (Version None)
Quarter: 2008Q4

REPORT INFORMATION
  Report Type: 
  Country: None (occurrence: None)
  Receive Date: 20081212
  Receipt Date: 20081201
  Transmission Date: 20090506
  Serious: Yes (Hospitalization)
  Sender: FDA-Public Use
  Company Number: US-MERCK-0812USA00617

PATIENT
  Age: 19 Year
  Sex: Male

DRUGS (3)
  1. STROMECTOL [Suspect]
     Indication: STRONGYLOIDIASIS
     Route: 048
  2. STROMECTOL [Suspect]
     Route: 058
  3. STROMECTOL [Suspect]
     Route: 054

REACTIONS (12)
  - COLITIS [None]
  - DYSPNOEA [None]
  - GASTRITIS [None]
  - ILEUS [None]
  - INAPPROPRIATE ANTIDIURETIC HORMONE SECRETION [None]
  - INJECTION SITE PAIN [None]
  - INTERSTITIAL LUNG DISEASE [None]
  - LYMPHADENOPATHY [None]
  - OFF LABEL USE [None]
  - PLEURAL EFFUSION [None]
  - PNEUMOCYSTIS JIROVECI PNEUMONIA [None]
  - STRONGYLOIDIASIS [None]
